FAERS Safety Report 5120279-0 (Version None)
Quarter: 2006Q4

REPORT INFORMATION
  Report Type: 
  Country: None (occurrence: None)
  Receive Date: 20061004
  Receipt Date: 20060927
  Transmission Date: 20070319
  Serious: Yes (Hospitalization)
  Sender: FDA-Public Use
  Company Number: CL-BRISTOL-MYERS SQUIBB COMPANY-13523295

PATIENT
  Age: 61 Year
  Sex: Female

DRUGS (5)
  1. CISPLATIN [Suspect]
     Indication: GASTRIC CANCER
     Route: 041
     Dates: start: 20060908, end: 20060908
  2. FLUOROURACIL [Suspect]
     Indication: GASTRIC CANCER
     Route: 041
     Dates: start: 20060908, end: 20060913
  3. NYSTATIN [Concomitant]
     Indication: ANTIFUNGAL PROPHYLAXIS
     Dates: start: 20060908
  4. MUCAINE [Concomitant]
     Indication: MUCOSAL INFLAMMATION
     Route: 048
     Dates: start: 20060908
  5. IRON SUCCINYL-PROTEIN COMPLEX [Concomitant]
     Indication: ANAEMIA
     Route: 048
     Dates: start: 20060828

REACTIONS (1)
  - STOMATITIS [None]
